FAERS Safety Report 4702214-X (Version None)
Quarter: 2005Q2

REPORT INFORMATION
  Report Type: 
  Country: None (occurrence: None)
  Receive Date: 20050628
  Receipt Date: 20050628
  Transmission Date: 20051028
  Serious: Yes (Other)
  Sender: FDA-Public Use
  Company Number: None

PATIENT
  Age: 48 Year
  Sex: Female
  Weight: 65.7716 kg

DRUGS (2)
  1. ENBREL [Suspect]
     Indication: PSORIASIS
     Dosage: 50MG   BIW   SUBCUTANEOUS
     Route: 058
     Dates: start: 20040818, end: 20050623
  2. CORTICOSTEROIDS [Concomitant]

REACTIONS (1)
  - PULMONARY SARCOIDOSIS [None]
